FAERS Safety Report 21974663 (Version 2)
Quarter: 2023Q1

REPORT INFORMATION
  Report Type: Spontaneous
  Country: US (occurrence: US)
  Receive Date: 20230209
  Receipt Date: 20230302
  Transmission Date: 20230418
  Serious: No
  Sender: FDA-Public Use
  Company Number: US-BRACCO-2023US00381

PATIENT
  Age: 59 Year
  Sex: Female

DRUGS (3)
  1. CARDIOGEN-82 [Suspect]
     Active Substance: RUBIDIUM CHLORIDE RB-82
     Indication: Scan myocardial perfusion
     Dosage: 55.96 MCI, TOTAL (REST AND SSTRESS)
     Dates: start: 20230127, end: 20230127
  2. CARDIOGEN-82 [Suspect]
     Active Substance: RUBIDIUM CHLORIDE RB-82
     Indication: Scan myocardial perfusion
     Dosage: 55.96 MCI, TOTAL (REST AND SSTRESS)
     Dates: start: 20230127, end: 20230127
  3. LACTATED RINGERS SOLUTION [Concomitant]
     Active Substance: CALCIUM CHLORIDE\POTASSIUM CHLORIDE\SODIUM CHLORIDE\SODIUM LACTATE
     Indication: Scan myocardial perfusion
     Dosage: UNK
     Dates: start: 20230127, end: 20230127

REACTIONS (2)
  - Product preparation error [Unknown]
  - No adverse event [Unknown]

NARRATIVE: CASE EVENT DATE: 20230127
